FAERS Safety Report 6506051-5 (Version None)
Quarter: 2009Q4

REPORT INFORMATION
  Report Type: 
  Country: None (occurrence: None)
  Receive Date: 20091218
  Receipt Date: 20091208
  Transmission Date: 20100525
  Serious: Yes (Life-Threatening, Hospitalization)
  Sender: FDA-Public Use
  Company Number: AU-JNJFOC-20091203109

PATIENT
  Sex: Male

DRUGS (7)
  1. HALOPERIDOL [Suspect]
     Indication: DRUG EXPOSURE DURING PREGNANCY
  2. QUETIAPINE FUMARATE [Interacting]
     Indication: DRUG EXPOSURE DURING PREGNANCY
     Dosage: 900-1000 MG DAILY
  3. EFFEXOR [Interacting]
     Indication: DRUG EXPOSURE DURING PREGNANCY
  4. ZOLOFT [Interacting]
     Indication: DRUG EXPOSURE DURING PREGNANCY
  5. FOLIC ACID [Concomitant]
     Indication: DRUG EXPOSURE DURING PREGNANCY
  6. ELEVIT [Concomitant]
     Indication: DRUG EXPOSURE DURING PREGNANCY
  7. EPIDURAL ANESTHESIA [Concomitant]

REACTIONS (5)
  - DRUG INTERACTION [None]
  - JAUNDICE [None]
  - PREMATURE BABY [None]
  - RESPIRATORY DEPRESSION [None]
  - WITHDRAWAL SYNDROME [None]
